FAERS Safety Report 9265190 (Version 2)
Quarter: 2013Q2

REPORT INFORMATION
  Report Type: Spontaneous
  Country: JP (occurrence: JP)
  Receive Date: 20130501
  Receipt Date: 20130528
  Transmission Date: 20140414
  Serious: Yes (Other)
  Sender: FDA-Public Use
  Company Number: JP-PFIZER INC-2013120254

PATIENT
  Age: 74 Year
  Sex: Female

DRUGS (5)
  1. AZULFIDINE EN [Suspect]
     Indication: RHEUMATOID ARTHRITIS
     Dosage: 250 MG, 2X/DAY (MORNING AND EVENING)
     Route: 048
     Dates: start: 20130304, end: 20130319
  2. AZULFIDINE EN [Suspect]
     Dosage: 500 MG, 2X/DAY (MORNING AND EVENING)
     Route: 048
     Dates: start: 20130319, end: 20130416
  3. PREDONINE [Concomitant]
     Dosage: 5 MG, 2X/DAY
     Route: 048
     Dates: start: 20130124
  4. CELECOX [Concomitant]
     Dosage: 100 MG, 4X/DAY
     Route: 048
     Dates: start: 20130205
  5. REBAMIPIDE [Concomitant]
     Dosage: 100 MG, 2X/DAY
     Route: 048
     Dates: start: 20130205

REACTIONS (1)
  - Hepatic function abnormal [Recovering/Resolving]
